FAERS Safety Report 7331651-2 (Version None)
Quarter: 2011Q1

REPORT INFORMATION
  Report Type: 
  Country: None (occurrence: None)
  Receive Date: 20110304
  Receipt Date: 20110225
  Transmission Date: 20110831
  Serious: Yes (Other)
  Sender: FDA-Public Use
  Company Number: ZA-ABBOTT-10P-143-0687010-00

PATIENT
  Age: 4 Year
  Sex: Male

DRUGS (3)
  1. SEVOFLURANE [Suspect]
     Indication: ANAESTHESIA
     Dosage: 3.5 %/MAC 1.8
     Route: 055
     Dates: start: 20101112, end: 20101112
  2. OXYGEN [Suspect]
     Indication: PRODUCT USED FOR UNKNOWN INDICATION
     Dosage: 50 %
  3. NITROGEN [Suspect]
     Indication: PRODUCT USED FOR UNKNOWN INDICATION
     Dosage: 50 %

REACTIONS (1)
  - AIRWAY BURNS [None]
